FAERS Safety Report 13455664 (Version 1)
Quarter: 2017Q2

REPORT INFORMATION
  Report Type: Spontaneous
  Country: SE (occurrence: US)
  Receive Date: 20170419
  Receipt Date: 20170419
  Transmission Date: 20170830
  Serious: Yes (Other)
  Sender: FDA-Public Use
  Company Number: SE-SEBELA IRELAND LIMITED-2017SEB00251

PATIENT

DRUGS (1)
  1. HYDROCORTISONE. [Suspect]
     Active Substance: HYDROCORTISONE
     Indication: PRIMARY ADRENAL INSUFFICIENCY
     Dosage: UNK, 1X/DAY, IN THE MORNING
     Route: 048

REACTIONS (2)
  - Gastroenteritis [Recovered/Resolved]
  - Adrenocortical insufficiency acute [Recovered/Resolved]
